FAERS Safety Report 8342504-5 (Version None)
Quarter: 2012Q2

REPORT INFORMATION
  Report Type: 
  Country: None (occurrence: None)
  Receive Date: 20120508
  Receipt Date: 20120427
  Transmission Date: 20120825
  Serious: No
  Sender: FDA-Public Use
  Company Number: US-BIOGENIDEC-2012BI014985

PATIENT
  Age: 37 Year
  Sex: Male

DRUGS (1)
  1. TYSABRI [Suspect]
     Indication: MULTIPLE SCLEROSIS
     Route: 042
     Dates: start: 20120320

REACTIONS (5)
  - PRURITUS [None]
  - FLATULENCE [None]
  - DIARRHOEA [None]
  - CHEST DISCOMFORT [None]
  - ABDOMINAL PAIN UPPER [None]
